FAERS Safety Report 11279484 (Version 1)
Quarter: 2015Q3

REPORT INFORMATION
  Report Type: Spontaneous
  Country: JP (occurrence: JP)
  Receive Date: 20150717
  Receipt Date: 20150717
  Transmission Date: 20151125
  Serious: Yes (Other)
  Sender: FDA-Public Use
  Company Number: PHJP2015JP009820

PATIENT
  Age: 81 Year
  Sex: Female

DRUGS (2)
  1. PURSENNIDE TAB [Suspect]
     Active Substance: SENNOSIDES A AND B
     Indication: PRODUCT USED FOR UNKNOWN INDICATION
     Dosage: 24 MG, UNK
     Route: 048
  2. PURSENNIDE TAB [Suspect]
     Active Substance: SENNOSIDES A AND B
     Dosage: 36 MG, UNK
     Route: 048

REACTIONS (1)
  - Blood sodium decreased [Unknown]

NARRATIVE: CASE EVENT DATE: 20150612
